FAERS Safety Report 5565817-9 (Version None)
Quarter: 2007Q4

REPORT INFORMATION
  Report Type: 
  Country: None (occurrence: None)
  Receive Date: 20071213
  Receipt Date: 20071126
  Transmission Date: 20080405
  Serious: Yes (Hospitalization, Other)
  Sender: FDA-Public Use
  Company Number: M-07-1030

PATIENT
  Age: 74 Year
  Sex: Female

DRUGS (17)
  1. FORTICAL [Suspect]
     Indication: OSTEOPOROSIS
     Dosage: 200 IU, QD, INTRANASAL
     Dates: start: 20070501, end: 20071101
  2. NEXIUM [Concomitant]
  3. ZOCOR [Concomitant]
  4. TOPROL-XL [Concomitant]
  5. DIOVAN [Concomitant]
  6. ASACOL [Concomitant]
  7. PLAVIX [Concomitant]
  8. NORVASC [Concomitant]
  9. METFORMIN HCL [Concomitant]
  10. HUMIRA [Concomitant]
  11. VICODIN [Concomitant]
  12. VITAMIN B-12 [Concomitant]
  13. CALCIUM [Concomitant]
  14. GLUCOSAMINE WITH CHONDROITIN [Concomitant]
  15. ASPIRIN [Concomitant]
  16. VITAMIN D [Concomitant]
  17. MULTI-VITAMIN [Concomitant]

REACTIONS (9)
  - BACK PAIN [None]
  - BLINDNESS UNILATERAL [None]
  - CORNEAL DYSTROPHY [None]
  - EPISTAXIS [None]
  - EYE HAEMORRHAGE [None]
  - EYE PAIN [None]
  - HEADACHE [None]
  - PAIN [None]
  - VISION BLURRED [None]
